FAERS Safety Report 20602929 (Version 1)
Quarter: 2022Q1

REPORT INFORMATION
  Report Type: Spontaneous
  Country: US (occurrence: US)
  Receive Date: 20220316
  Receipt Date: 20220316
  Transmission Date: 20220423
  Serious: No
  Sender: FDA-Public Use
  Company Number: US-PFIZER INC-202200286694

PATIENT
  Age: 62 Year
  Sex: Male
  Weight: 63.5 kg

DRUGS (1)
  1. NAVANE [Suspect]
     Active Substance: THIOTHIXENE
     Dosage: 5 MG, 2X/DAY

REACTIONS (1)
  - Drug ineffective [Unknown]
